FAERS Safety Report 24911375 (Version 1)
Quarter: 2025Q1

REPORT INFORMATION
  Report Type: Spontaneous
  Country: CN (occurrence: CN)
  Receive Date: 20250131
  Receipt Date: 20250131
  Transmission Date: 20250409
  Serious: Yes (Life-Threatening, Hospitalization, Other)
  Sender: GLAXOSMITHKLINE
  Company Number: CN-GSK-CN2025APC010219

PATIENT

DRUGS (7)
  1. LAMICTAL [Suspect]
     Active Substance: LAMOTRIGINE
     Indication: Emotional disorder of childhood
     Dosage: 25 MG, BID
     Route: 048
     Dates: start: 20250106, end: 20250116
  2. DIAZEPAM [Suspect]
     Active Substance: DIAZEPAM
     Indication: Emotional disorder of childhood
     Dosage: 5 MG, QD
     Route: 042
     Dates: start: 20250115, end: 20250118
  3. METHYLCOBALAMIN [Suspect]
     Active Substance: METHYLCOBALAMIN
     Indication: Emotional disorder of childhood
     Dosage: 0.5 MG, TID
     Route: 048
     Dates: start: 20250115, end: 20250116
  4. ESCITALOPRAM OXALATE [Suspect]
     Active Substance: ESCITALOPRAM OXALATE
     Indication: Emotional disorder of childhood
     Dosage: 10 MG, QD
     Route: 048
     Dates: start: 20250106, end: 20250114
  5. LURASIDONE [Suspect]
     Active Substance: LURASIDONE
     Indication: Emotional disorder of childhood
     Dosage: 20 MG, QD
     Route: 048
     Dates: start: 20250113, end: 20250114
  6. LURASIDONE [Suspect]
     Active Substance: LURASIDONE
     Dosage: 20 MG, QD
     Route: 048
     Dates: start: 20250115, end: 20250116
  7. LEXAPRO [Concomitant]
     Active Substance: ESCITALOPRAM OXALATE
     Indication: Emotional disorder of childhood
     Dosage: 10 MG, QD
     Route: 048
     Dates: start: 20250115, end: 20250118

REACTIONS (11)
  - Rash [Recovering/Resolving]
  - Pruritus [Recovering/Resolving]
  - Drug hypersensitivity [Recovering/Resolving]
  - Affective disorder [Unknown]
  - Chest discomfort [Unknown]
  - Discomfort [Unknown]
  - Condition aggravated [Unknown]
  - Rash erythematous [Recovering/Resolving]
  - Drug ineffective for unapproved indication [Unknown]
  - Product use in unapproved indication [Unknown]
  - Product prescribing issue [Unknown]

NARRATIVE: CASE EVENT DATE: 20250116
